FAERS Safety Report 7593389-6 (Version None)
Quarter: 2011Q3

REPORT INFORMATION
  Report Type: 
  Country: None (occurrence: None)
  Receive Date: 20110706
  Receipt Date: 20110630
  Transmission Date: 20111222
  Serious: Yes (Death, Hospitalization)
  Sender: FDA-Public Use
  Company Number: US-MERCK-1104USA00576

PATIENT
  Age: 87 Year
  Sex: Male
  Weight: 78 kg

DRUGS (6)
  1. ZOLINZA [Suspect]
     Route: 048
  2. AGGRENOX [Concomitant]
     Route: 048
  3. ZOLINZA [Suspect]
     Indication: T-CELL LYMPHOMA
     Route: 048
     Dates: end: 20110330
  4. GLUCOSAMINE [Concomitant]
     Route: 065
  5. TRICOR [Concomitant]
     Route: 048
  6. ZOLINZA [Suspect]
     Route: 048
     Dates: start: 20110308

REACTIONS (12)
  - DEHYDRATION [None]
  - TUMOUR LYSIS SYNDROME [None]
  - T-CELL LYMPHOMA [None]
  - APHAGIA [None]
  - ANAEMIA [None]
  - NAUSEA [None]
  - RENAL FAILURE ACUTE [None]
  - FATIGUE [None]
  - WEIGHT DECREASED [None]
  - ASTHENIA [None]
  - THROMBOCYTOPENIA [None]
  - HYPERCALCAEMIA [None]
